FAERS Safety Report 18908425 (Version 1)
Quarter: 2021Q1

REPORT INFORMATION
  Report Type: Spontaneous
  Country: US (occurrence: US)
  Receive Date: 20210217
  Receipt Date: 20210217
  Transmission Date: 20210420
  Serious: Yes (Hospitalization)
  Sender: FDA-Public Use
  Company Number: None

PATIENT
  Age: 77 Year
  Sex: Male
  Weight: 60 kg

DRUGS (1)
  1. DURVALUMAB (DURVALUMAB 50MG/ML INJ,SOLN,10ML) [Suspect]
     Active Substance: DURVALUMAB
     Indication: LUNG SQUAMOUS CELL CARCINOMA STAGE III
     Route: 042
     Dates: start: 20200914, end: 20201019

REACTIONS (8)
  - Hyperthyroidism [None]
  - Acute respiratory failure [None]
  - Dyspnoea [None]
  - Pneumonitis [None]
  - Acute myocardial infarction [None]
  - Pancytopenia [None]
  - Thyroiditis [None]
  - Infection [None]

NARRATIVE: CASE EVENT DATE: 20201022
